FAERS Safety Report 8183457-2 (Version None)
Quarter: 2012Q1

REPORT INFORMATION
  Report Type: 
  Country: None (occurrence: None)
  Receive Date: 20120305
  Receipt Date: 20120224
  Transmission Date: 20120608
  Serious: Yes (Hospitalization)
  Sender: FDA-Public Use
  Company Number: US-BAYER-2012-018896

PATIENT
  Age: 19 Year
  Sex: Female

DRUGS (3)
  1. ALBUTEROL [Concomitant]
  2. DROSPIRENONE AND ETHINYL ESTRADIOL [Suspect]
     Indication: CONTRACEPTION
     Route: 048
  3. YASMIN [Suspect]
     Dosage: UNK

REACTIONS (1)
  - PULMONARY EMBOLISM [None]
